FAERS Safety Report 5608161-3 (Version None)
Quarter: 2008Q1

REPORT INFORMATION
  Report Type: 
  Country: None (occurrence: None)
  Receive Date: 20080125
  Receipt Date: 20080111
  Transmission Date: 20080703
  Serious: Yes (Death, Hospitalization, Other)
  Sender: FDA-Public Use
  Company Number: 2008US000256

PATIENT
  Age: 77 Year
  Sex: Male

DRUGS (16)
  1. AMBISOME [Suspect]
     Dosage: 300 MG, UID/QD, IV, NOS
     Route: 042
     Dates: start: 20071005, end: 20071010
  2. DECADRON [Suspect]
     Indication: BRONCHOPULMONARY ASPERGILLOSIS
     Dosage: 6 MG, UID/QD
     Dates: start: 20070910, end: 20071014
  3. DIFLUCAN [Concomitant]
  4. FUNGUARD (MICAFUNGIN SODIUM) [Concomitant]
  5. MAXIPIME [Concomitant]
  6. VFEND [Concomitant]
  7. DENOSINE (GANCICLOVIR) [Concomitant]
  8. POLYGLOBIN (IMMUNOGLOBULINS) [Concomitant]
  9. MINOCYCLINE HCL [Concomitant]
  10. ACYCLOVIR [Concomitant]
  11. BACTRIM [Concomitant]
  12. OMEPRAL [Concomitant]
  13. ANTITHROMBIN III (ANTITHROMBIN III) [Concomitant]
  14. AZACTAM [Concomitant]
  15. VANCOMYCIN [Concomitant]
  16. MEROPEN (MEROPENEM) [Concomitant]

REACTIONS (12)
  - ALANINE AMINOTRANSFERASE INCREASED [None]
  - ANTITHROMBIN III DEFICIENCY [None]
  - ASPARTATE AMINOTRANSFERASE INCREASED [None]
  - BLOOD POTASSIUM DECREASED [None]
  - CONDITION AGGRAVATED [None]
  - GASTRITIS [None]
  - HAEMODIALYSIS [None]
  - HYPERKALAEMIA [None]
  - LIVER DISORDER [None]
  - PNEUMONIA [None]
  - RENAL DISORDER [None]
  - RESPIRATION ABNORMAL [None]
